FAERS Safety Report 8887654 (Version 1)
Quarter: 2012Q4

REPORT INFORMATION
  Report Type: 
  Country: KR (occurrence: KR)
  Receive Date: 20121105
  Receipt Date: 20121105
  Transmission Date: 20130627
  Serious: Yes (Other)
  Sender: FDA-Public Use
  Company Number: KR-MYLANLABS-2012S1022107

PATIENT
  Age: 9 Year
  Sex: Female

DRUGS (3)
  1. MELPHALAN [Suspect]
     Indication: PLEURAL NEOPLASM
     Dosage: 60 mg/m2/day for 3 days
     Route: 065
  2. ETOPOSIDE [Suspect]
     Indication: PLEURAL NEOPLASM
     Dosage: 200 mg/m2/day for 5 days
     Route: 065
  3. CARBOPLATIN [Suspect]
     Indication: PLEURAL NEOPLASM
     Dosage: 350 mg/m2/day for 5 days
     Route: 065

REACTIONS (1)
  - Follicular thyroid cancer [Recovered/Resolved with Sequelae]
